FAERS Safety Report 11564966 (Version 3)
Quarter: 2016Q4

REPORT INFORMATION
  Report Type: Spontaneous
  Country: US (occurrence: US)
  Receive Date: 20150928
  Receipt Date: 20161027
  Transmission Date: 20170206
  Serious: Yes (Hospitalization, Other)
  Sender: FDA-Public Use
  Company Number: US-EXELIXIS-CABO-13002369

PATIENT
  Age: 75 Year
  Sex: Male
  Weight: 77 kg

DRUGS (19)
  1. AMLODIPINE [Concomitant]
     Active Substance: AMLODIPINE BESYLATE
  2. CAPRELSA [Concomitant]
     Active Substance: VANDETANIB
  3. COMETRIQ [Suspect]
     Active Substance: CABOZANTINIB S-MALATE
     Dosage: 60 MG, QD
     Route: 048
     Dates: start: 20130312, end: 20130430
  4. COMETRIQ [Suspect]
     Active Substance: CABOZANTINIB S-MALATE
     Dosage: 60 MG, QD
     Route: 048
     Dates: start: 201305, end: 20130530
  5. COMETRIQ [Suspect]
     Active Substance: CABOZANTINIB S-MALATE
     Dosage: 80 MG, MON, WEDS, FRI
     Route: 048
     Dates: start: 20140820, end: 20160620
  6. TRADJENTA [Concomitant]
     Active Substance: LINAGLIPTIN
  7. NEXIUM [Concomitant]
     Active Substance: ESOMEPRAZOLE MAGNESIUM
  8. AFINITOR [Concomitant]
     Active Substance: EVEROLIMUS
  9. LABETALOL [Concomitant]
     Active Substance: LABETALOL\LABETALOL HYDROCHLORIDE
  10. TORASEMIDE [Concomitant]
     Active Substance: TORSEMIDE
  11. COMETRIQ [Suspect]
     Active Substance: CABOZANTINIB S-MALATE
     Indication: MEDULLARY THYROID CANCER
     Dosage: 140 MG, QD
     Route: 048
     Dates: start: 20130206, end: 20130221
  12. COMETRIQ [Suspect]
     Active Substance: CABOZANTINIB S-MALATE
     Dosage: 120 MG, QD
     Route: 048
     Dates: start: 20130222, end: 20130308
  13. XELODA [Concomitant]
     Active Substance: CAPECITABINE
  14. CYTOMEL [Concomitant]
     Active Substance: LIOTHYRONINE SODIUM
  15. MINOCYCLINE [Concomitant]
     Active Substance: MINOCYCLINE\MINOCYCLINE HYDROCHLORIDE
  16. SIMVASTATIN. [Concomitant]
     Active Substance: SIMVASTATIN
  17. VALSARTAN. [Concomitant]
     Active Substance: VALSARTAN
  18. TEMOZOLOMIDE. [Concomitant]
     Active Substance: TEMOZOLOMIDE
  19. SYNTHROID [Concomitant]
     Active Substance: LEVOTHYROXINE SODIUM

REACTIONS (27)
  - Food poisoning [Unknown]
  - Nausea [Recovering/Resolving]
  - Headache [Unknown]
  - Anorectal discomfort [Not Recovered/Not Resolved]
  - Flatulence [Unknown]
  - Decreased appetite [Unknown]
  - Asthenia [Unknown]
  - Peritoneal haematoma [Recovered/Resolved]
  - Skin atrophy [Unknown]
  - Dysgeusia [Unknown]
  - Vomiting [Unknown]
  - Frequent bowel movements [Unknown]
  - Blood calcium decreased [Unknown]
  - Hypertension [Unknown]
  - Peritonitis [Recovered/Resolved]
  - Renal function test abnormal [Unknown]
  - Rash [Unknown]
  - Dry skin [Not Recovered/Not Resolved]
  - Abdominal discomfort [Not Recovered/Not Resolved]
  - Incarcerated umbilical hernia [Recovered/Resolved]
  - Glossitis [Unknown]
  - Pain in extremity [Unknown]
  - Oral pain [Unknown]
  - Muscular weakness [Unknown]
  - Fatigue [Not Recovered/Not Resolved]
  - Haemorrhage [Recovered/Resolved]
  - Dry mouth [Unknown]

NARRATIVE: CASE EVENT DATE: 2013
